FAERS Safety Report 9264345 (Version 3)
Quarter: 2014Q3

REPORT INFORMATION
  Report Type: Spontaneous
  Country: US (occurrence: US)
  Receive Date: 20130430
  Receipt Date: 20140817
  Transmission Date: 20150326
  Serious: Yes (Hospitalization, Disabling, Other)
  Sender: FDA-Public Use
  Company Number: US-009507513-1304USA017596

PATIENT
  Sex: Female
  Weight: 108.84 kg

DRUGS (1)
  1. NUVARING [Suspect]
     Active Substance: ETHINYL ESTRADIOL\ETONOGESTREL
     Indication: CONTRACEPTION
     Dosage: UNK
     Route: 067
     Dates: start: 20110331, end: 20110421

REACTIONS (15)
  - Menorrhagia [Unknown]
  - Heparin-induced thrombocytopenia [Unknown]
  - Pulmonary endarterectomy [Unknown]
  - Pulmonary embolism [Unknown]
  - Presyncope [Unknown]
  - Pulmonary embolism [Unknown]
  - Cardiomegaly [Unknown]
  - Haemoptysis [Unknown]
  - Portal vein thrombosis [Unknown]
  - Pulmonary hypertension [Unknown]
  - Renal failure acute [Recovering/Resolving]
  - Pulmonary embolism [Unknown]
  - Antiphospholipid syndrome [Unknown]
  - Deep vein thrombosis [Unknown]
  - Vomiting [Unknown]

NARRATIVE: CASE EVENT DATE: 20110425
